FAERS Safety Report 6016324-0 (Version None)
Quarter: 2008Q4

REPORT INFORMATION
  Report Type: 
  Country: None (occurrence: None)
  Receive Date: 20081218
  Receipt Date: 20081203
  Transmission Date: 20090506
  Serious: Yes (Hospitalization)
  Sender: FDA-Public Use
  Company Number: KV200800880

PATIENT
  Age: 59 Year
  Sex: Male
  Weight: 129.3 kg

DRUGS (12)
  1. ISOSORBIDE MONONITRATE [Suspect]
     Indication: HYPERTENSION
     Dosage: 30 MG, BID
     Dates: end: 20081106
  2. RAMIPRIL [Concomitant]
  3. TOPROL-XL [Concomitant]
  4. ZOCOR [Concomitant]
  5. ACTOS /01460201/ (PIOGLITAZONE) [Concomitant]
  6. CYMBALTA (DULOXETINE HYDROCHLOIRDE) [Concomitant]
  7. MIDODRINE HYDROCHLORIDE [Concomitant]
  8. PLAVIX [Concomitant]
  9. ASPIRIN [Concomitant]
  10. COUMADIN [Concomitant]
  11. PROTONIX 01263201/ (PANTOPRAZOLE) [Concomitant]
  12. CILOSTAZOL [Concomitant]

REACTIONS (4)
  - DIZZINESS [None]
  - LOSS OF CONSCIOUSNESS [None]
  - ORTHOSTATIC HYPOTENSION [None]
  - PRODUCT QUALITY ISSUE [None]
